FAERS Safety Report 13881689 (Version 1)
Quarter: 2017Q3

REPORT INFORMATION
  Report Type: Report from Study
  Country: BR (occurrence: BR)
  Receive Date: 20170818
  Receipt Date: 20170818
  Transmission Date: 20171127
  Serious: Yes (Death)
  Sender: FDA-Public Use
  Company Number: PHHY2017BR121709

PATIENT
  Age: 89 Year
  Sex: Male

DRUGS (1)
  1. EXELON PATCH [Suspect]
     Active Substance: RIVASTIGMINE
     Indication: PRODUCT USED FOR UNKNOWN INDICATION
     Route: 065

REACTIONS (4)
  - Hypokinesia [Not Recovered/Not Resolved]
  - Multiple organ dysfunction syndrome [Fatal]
  - Neurodegenerative disorder [Fatal]
  - Coordination abnormal [Fatal]
